FAERS Safety Report 4485461-4 (Version None)
Quarter: 2004Q4

REPORT INFORMATION
  Report Type: 
  Country: None (occurrence: None)
  Receive Date: 20041026
  Receipt Date: 20041018
  Transmission Date: 20050328
  Serious: Yes (Hospitalization, Other)
  Sender: FDA-Public Use
  Company Number: AU-BRISTOL-MYERS SQUIBB COMPANY-12733861

PATIENT
  Sex: Female

DRUGS (2)
  1. HYDREA [Suspect]
     Route: 048
     Dates: start: 20041018, end: 20041018
  2. LAMOTRIGINE [Suspect]

REACTIONS (2)
  - INTUBATION [None]
  - OVERDOSE [None]
